FAERS Safety Report 10091403 (Version 2)
Quarter: 2014Q2

REPORT INFORMATION
  Report Type: Report from Study
  Country: BR (occurrence: BR)
  Receive Date: 20140421
  Receipt Date: 20140620
  Transmission Date: 20141212
  Serious: Yes (Hospitalization, Other)
  Sender: FDA-Public Use
  Company Number: PHHY2014BR048413

PATIENT
  Age: 70 Year
  Sex: Male

DRUGS (16)
  1. DIOVAN [Suspect]
     Indication: CARDIAC DISORDER
     Dosage: 1 DF (320 MG),DAILY
  2. APRESOLIN [Suspect]
     Indication: CARDIAC DISORDER
     Dosage: UNK UKN, TID
  3. APRESOLIN [Suspect]
     Dosage: 1 DF (50 MG), BID (TWICE A DAY)
  4. SIMVASTATIN [Suspect]
     Dosage: 1 DF (20 MG), DAILY
  5. SIMVASTATIN [Suspect]
     Dosage: 1 DF (40 MG), QD (8 PM)
  6. AMIODARONE [Suspect]
     Indication: BLOOD PRESSURE
     Dosage: 1 DF (200 MG), QOD
  7. PHENYTOIN [Suspect]
     Indication: CARDIAC DISORDER
     Dosage: 2 DF (100 MG), DAILY
     Dates: start: 201401
  8. ZANIDIP [Suspect]
     Indication: CARDIAC DISORDER
     Dosage: 1 DF (20 MG), QD (AT NIGHT)
  9. NATRILIX [Suspect]
     Indication: BLOOD PRESSURE
     Dosage: 1 DF (1.5 MG), QD (IN THE MORNING)
  10. SPIRONOLACTONE [Suspect]
     Indication: CARDIAC DISORDER
     Dosage: 1 DF (25 MG), QD IN THE MORNING
  11. ALPRAZOLAM [Suspect]
     Indication: SLEEP DISORDER
     Dosage: 1 DF, DAILY
  12. ALPRAZOLAM [Suspect]
     Dosage: 1 DF, DAILY
  13. METFORMIN [Concomitant]
     Indication: DIABETES MELLITUS
     Dosage: 850 MG, UNK
  14. METFORMIN [Concomitant]
     Dosage: 3 DF (850 MG), DAILY (AFTER BREAKFAST, LUNCH AND DINNER)
  15. OMEPRAZOLE [Concomitant]
     Indication: ABDOMINAL PAIN UPPER
     Dosage: 40 MG, UNK
  16. OMEPRAZOLE [Concomitant]
     Dosage: 1 DF (20 MG), QD (AT 5:30 AM)

REACTIONS (8)
  - Cerebral haemorrhage [Unknown]
  - Cerebral thrombosis [Unknown]
  - Hemiplegia [Unknown]
  - Neck mass [Unknown]
  - Head discomfort [Recovering/Resolving]
  - Memory impairment [Unknown]
  - Weight increased [Unknown]
  - Rhinitis allergic [Unknown]
